FAERS Safety Report 4738513-5 (Version None)
Quarter: 2005Q3

REPORT INFORMATION
  Report Type: 
  Country: None (occurrence: None)
  Receive Date: 20050809
  Receipt Date: 20050726
  Transmission Date: 20060218
  Serious: Yes (Death, Hospitalization)
  Sender: FDA-Public Use
  Company Number: GB-JNJFOC-20050602261

PATIENT
  Sex: Male
  Weight: 102 kg

DRUGS (3)
  1. IMODIUM [Suspect]
     Route: 048
     Dates: start: 20050503, end: 20050503
  2. IMODIUM [Suspect]
     Route: 048
     Dates: start: 20050503, end: 20050503
  3. PARACETAMOL [Concomitant]
     Route: 048

REACTIONS (27)
  - ABDOMINAL DISTENSION [None]
  - ACTIVATED PARTIAL THROMBOPLASTIN TIME SHORTENED [None]
  - ANAPHYLACTIC SHOCK [None]
  - BLOOD CREATINE PHOSPHOKINASE INCREASED [None]
  - BLOOD CREATININE INCREASED [None]
  - CARDIAC ARREST [None]
  - CEREBRAL ATHEROSCLEROSIS [None]
  - COLONIC STENOSIS [None]
  - CORONARY ARTERY ATHEROSCLEROSIS [None]
  - CORONARY ARTERY OCCLUSION [None]
  - CORONARY ARTERY STENOSIS [None]
  - ELECTROMECHANICAL DISSOCIATION [None]
  - EYELID OEDEMA [None]
  - GASTROINTESTINAL DISORDER [None]
  - GENERALISED OEDEMA [None]
  - HEPATIC STEATOSIS [None]
  - HEPATOMEGALY [None]
  - INTERNATIONAL NORMALISED RATIO INCREASED [None]
  - LUNG CONSOLIDATION [None]
  - LUNG INFILTRATION [None]
  - MULTI-ORGAN FAILURE [None]
  - OEDEMA [None]
  - RENAL IMPAIRMENT [None]
  - SEPTIC SHOCK [None]
  - SMALL INTESTINAL OBSTRUCTION [None]
  - THERAPY NON-RESPONDER [None]
  - TROPONIN T INCREASED [None]
